FAERS Safety Report 4661974-7 (Version None)
Quarter: 2005Q2

REPORT INFORMATION
  Report Type: 
  Country: None (occurrence: None)
  Receive Date: 20050511
  Receipt Date: 20050511
  Transmission Date: 20051028
  Serious: Yes (Hospitalization)
  Sender: FDA-Public Use
  Company Number: None

PATIENT
  Age: 71 Year
  Sex: Male

DRUGS (10)
  1. FOSINOPRIL [Suspect]
     Indication: HYPERTENSION
     Dosage: 20MG QD
     Dates: start: 20050328
  2. METOPROLOL [Suspect]
     Indication: HYPERTENSION
     Dosage: 12.5 MG QD
     Dates: start: 20050328
  3. AUGMENTIN '125' [Concomitant]
  4. SINEMET [Concomitant]
  5. FUROSEMIDE [Concomitant]
  6. FELODIPINE [Concomitant]
  7. ISOSORBIDE [Concomitant]
  8. ASPIRIN [Concomitant]
  9. ZOCOR [Concomitant]
  10. OMEPRAZOLE [Concomitant]

REACTIONS (1)
  - HYPOTENSION [None]
